FAERS Safety Report 16251286 (Version 1)
Quarter: 2019Q2

REPORT INFORMATION
  Report Type: Spontaneous
  Country: US (occurrence: US)
  Receive Date: 20190426
  Receipt Date: 20190426
  Transmission Date: 20190711
  Serious: Yes (Life-Threatening, Disabling, Other)
  Sender: FDA-Public Use
  Company Number: None

PATIENT
  Age: 65 Year
  Sex: Female
  Weight: 54 kg

DRUGS (2)
  1. CHELATION THERA[Y WITH CALCIUM EDTA [Concomitant]
  2. GADOLINIUM [Suspect]
     Active Substance: GADOLINIUM
     Indication: X-RAY WITH CONTRAST

REACTIONS (2)
  - Metal poisoning [None]
  - Diarrhoea [None]

NARRATIVE: CASE EVENT DATE: 20190426
